FAERS Safety Report 8823091 (Version 4)
Quarter: 2014Q2

REPORT INFORMATION
  Report Type: Spontaneous
  Country: US (occurrence: US)
  Receive Date: 20121003
  Receipt Date: 20140520
  Transmission Date: 20141212
  Serious: Yes (Hospitalization, Other)
  Sender: FDA-Public Use
  Company Number: US-ASTRAZENECA-2012SE69758

PATIENT
  Age: 78 Year
  Sex: Female

DRUGS (5)
  1. NEXIUM [Suspect]
     Route: 048
  2. NEXIUM [Suspect]
     Route: 048
  3. CRESTOR [Suspect]
     Route: 048
  4. PROTONIX [Concomitant]
  5. ZANTAC [Concomitant]

REACTIONS (12)
  - Pain [Unknown]
  - Oesophagitis [Unknown]
  - Malaise [Unknown]
  - Vomiting [Unknown]
  - Gait disturbance [Unknown]
  - Gastric disorder [Unknown]
  - Aphagia [Unknown]
  - Hyperchlorhydria [Unknown]
  - Malaise [Unknown]
  - Nausea [Unknown]
  - Drug dose omission [Unknown]
  - Intentional product misuse [Unknown]
